FAERS Safety Report 8548041-7 (Version None)
Quarter: 2012Q3

REPORT INFORMATION
  Report Type: 
  Country: None (occurrence: None)
  Receive Date: 20120730
  Receipt Date: 20120725
  Transmission Date: 20120928
  Serious: Yes (Hospitalization, Other)
  Sender: FDA-Public Use
  Company Number: AT-ROCHE-1085980

PATIENT
  Age: 62 Year
  Sex: Male
  Weight: 70.098 kg

DRUGS (9)
  1. LUCENTIS [Suspect]
     Indication: DIABETIC RETINOPATHY
     Route: 050
     Dates: start: 20120125
  2. LASIX [Concomitant]
  3. FERROGRADUMET [Concomitant]
  4. ITERIUM [Concomitant]
  5. ARANESP [Concomitant]
  6. LUCENTIS [Suspect]
     Route: 050
     Dates: start: 20120201
  7. SIMVASTATIN [Concomitant]
  8. ENALAPRIL MALEATE OR COMPARATOR [Concomitant]
  9. INSULINE [Concomitant]

REACTIONS (2)
  - BLOOD PRESSURE DECREASED [None]
  - RENAL FAILURE [None]
